FAERS Safety Report 9784177 (Version 1)
Quarter: 2013Q4

REPORT INFORMATION
  Report Type: Spontaneous
  Country: IT (occurrence: IT)
  Receive Date: 20131226
  Receipt Date: 20131226
  Transmission Date: 20140711
  Serious: Yes (Other)
  Sender: FDA-Public Use
  Company Number: IT-TEVA-452463ISR

PATIENT
  Age: 45 Year
  Sex: Female
  Weight: 65 kg

DRUGS (2)
  1. QUETIAPINE [Suspect]
     Indication: IMPULSIVE BEHAVIOUR
     Dosage: 1200 MILLIGRAM DAILY;
     Route: 048
     Dates: start: 20131001, end: 20131010
  2. VENLAFAXINE [Concomitant]
     Indication: DEPRESSION
     Route: 048
     Dates: start: 20130912, end: 20131205

REACTIONS (3)
  - Confusional state [Recovered/Resolved]
  - Incontinence [Recovered/Resolved]
  - Sedation [Recovered/Resolved]
